FAERS Safety Report 11907772 (Version 1)
Quarter: 2016Q1

REPORT INFORMATION
  Report Type: Report from Study
  Country: US (occurrence: US)
  Receive Date: 20160111
  Receipt Date: 20160111
  Transmission Date: 20160526
  Serious: No
  Sender: FDA-Public Use
  Company Number: US-ABBVIE-15P-163-1504375-00

PATIENT
  Sex: Male

DRUGS (1)
  1. DUOPA [Suspect]
     Active Substance: CARBIDOPA\LEVODOPA
     Indication: PARKINSON^S DISEASE
     Dosage: ON FOR 6 WEEKS
     Route: 050
     Dates: start: 2015

REACTIONS (1)
  - Stoma site discharge [Not Recovered/Not Resolved]

NARRATIVE: CASE EVENT DATE: 20151117
